FAERS Safety Report 8646983 (Version 2)
Quarter: 2012Q4

REPORT INFORMATION
  Report Type: 
  Country: US (occurrence: US)
  Receive Date: 20120703
  Receipt Date: 20121228
  Transmission Date: 20130627
  Serious: Yes (Hospitalization, Other)
  Sender: FDA-Public Use
  Company Number: US-BAYER-2012-063947

PATIENT
  Age: 25 Year
  Sex: Female
  Weight: 77.1 kg

DRUGS (8)
  1. YASMIN [Suspect]
     Indication: ACNE
  2. YAZ [Suspect]
     Indication: ACNE
  3. CLINDAMYCIN PHOSPHATE [Concomitant]
     Dosage: Apply 2 times a day to affected area
     Dates: start: 20100930
  4. ATENOLOL [Concomitant]
  5. SULFAMETHOXAZOLE W/TRIMETHOPRIM [Concomitant]
  6. IBUPROFEN [Concomitant]
  7. NAPROXEN [Concomitant]
  8. FAMOTIDINE [Concomitant]

REACTIONS (5)
  - Cerebrovascular accident [None]
  - Pulmonary embolism [Recovered/Resolved]
  - Injury [None]
  - Pain [None]
  - Pain [None]
